FAERS Safety Report 22154313 (Version 1)
Quarter: 2023Q1

REPORT INFORMATION
  Report Type: Spontaneous
  Country: US (occurrence: US)
  Receive Date: 20230330
  Receipt Date: 20230330
  Transmission Date: 20230417
  Serious: Yes (Hospitalization)
  Sender: FDA-Public Use
  Company Number: US-JNJFOC-20230353941

PATIENT
  Age: 65 Year
  Sex: Male

DRUGS (3)
  1. APALUTAMIDE [Suspect]
     Active Substance: APALUTAMIDE
     Indication: Product used for unknown indication
     Route: 048
  2. ORGOVYX [Suspect]
     Active Substance: RELUGOLIX
     Indication: Neoplasm malignant
     Route: 048
     Dates: start: 20220519
  3. ORGOVYX [Suspect]
     Active Substance: RELUGOLIX
     Route: 065

REACTIONS (3)
  - Blood glucose increased [Recovering/Resolving]
  - Hip arthroplasty [Unknown]
  - Hot flush [Unknown]

NARRATIVE: CASE EVENT DATE: 20220501
